FAERS Safety Report 9253468 (Version 2)
Quarter: 2013Q2

REPORT INFORMATION
  Report Type: Spontaneous
  Country: IL (occurrence: IL)
  Receive Date: 20130425
  Receipt Date: 20130507
  Transmission Date: 20140414
  Serious: Yes (Other)
  Sender: FDA-Public Use
  Company Number: IL-ROCHE-1218303

PATIENT
  Sex: Female

DRUGS (4)
  1. AVASTIN [Suspect]
     Indication: COLON CANCER METASTATIC
     Route: 065
  2. FOLINIC ACID [Suspect]
     Indication: COLON CANCER METASTATIC
     Route: 065
  3. 5-FU [Suspect]
     Indication: COLON CANCER METASTATIC
     Route: 065
  4. IRINOTECAN [Suspect]
     Indication: COLON CANCER METASTATIC
     Route: 065

REACTIONS (1)
  - Intestinal obstruction [Unknown]
